FAERS Safety Report 20842302 (Version 2)
Quarter: 2022Q2

REPORT INFORMATION
  Report Type: Other
  Country: US (occurrence: None)
  Receive Date: 20220518
  Receipt Date: 20220603
  Transmission Date: 20220720
  Serious: Yes (Other)
  Sender: FDA-Public Use
  Company Number: US-ROCHE-3096993

PATIENT
  Sex: Female

DRUGS (3)
  1. XELODA [Suspect]
     Active Substance: CAPECITABINE
     Indication: Breast cancer female
     Dosage: TAKE 2 TABLETS BY MOUTH TWICE A DAY FOR 14 DAYS, THEN OFF 7 DAYS
     Route: 048
     Dates: start: 20210628
  2. XELODA [Suspect]
     Active Substance: CAPECITABINE
     Dosage: TAKE 2 TABLETS BY MOUTH TWICE A DAY FOR 14 DAYS, THEN OFF 7 DAYS
     Route: 048
  3. ERIBULIN [Suspect]
     Active Substance: ERIBULIN
     Indication: Product used for unknown indication
     Route: 042

REACTIONS (1)
  - Haematological malignancy [Unknown]
